FAERS Safety Report 7424516-9 (Version None)
Quarter: 2011Q2

REPORT INFORMATION
  Report Type: 
  Country: None (occurrence: None)
  Receive Date: 20110419
  Receipt Date: 20110406
  Transmission Date: 20111010
  Serious: Yes (Life-Threatening, Other)
  Sender: FDA-Public Use
  Company Number: DE-CELGENEUS-062-21880-11033002

PATIENT
  Age: 71 Year
  Sex: Male
  Weight: 71 kg

DRUGS (12)
  1. OVASTAT [Suspect]
     Dosage: 250 MILLIGRAM
     Route: 065
     Dates: start: 20101026, end: 20110101
  2. OVASTAT [Suspect]
     Dosage: 250 MILLIGRAM
     Route: 065
     Dates: start: 20110101, end: 20110211
  3. PANTAZOL [Concomitant]
     Route: 048
  4. CANDESARTAN [Concomitant]
     Route: 048
  5. REVLIMID [Suspect]
     Dosage: 10 MILLIGRAM
     Route: 048
     Dates: start: 20110101, end: 20110211
  6. ARCOXIA [Concomitant]
     Dosage: 60 MILLIGRAM
     Route: 048
  7. ACTOS [Concomitant]
     Dosage: 60 MILLIGRAM
     Route: 048
     Dates: start: 20110101
  8. FENTANYL [Concomitant]
     Route: 048
  9. ARCOXIA [Concomitant]
     Dosage: 60 MILLIGRAM
     Route: 048
     Dates: start: 20110101
  10. REVLIMID [Suspect]
     Dosage: 10 MILLIGRAM
     Route: 048
     Dates: start: 20101021, end: 20110101
  11. ACTOS [Concomitant]
     Dosage: 60 MILLIGRAM
     Route: 048
  12. METAMIZOLE [Concomitant]
     Route: 048

REACTIONS (7)
  - GENERAL PHYSICAL HEALTH DETERIORATION [None]
  - PULMONARY OEDEMA [None]
  - DECREASED APPETITE [None]
  - PANCYTOPENIA [None]
  - ABSCESS JAW [None]
  - BLOOD PRODUCT TRANSFUSION DEPENDENT [None]
  - PROSTATIC SPECIFIC ANTIGEN INCREASED [None]
